FAERS Safety Report 17481871 (Version 1)
Quarter: 2020Q1

REPORT INFORMATION
  Report Type: Spontaneous
  Country: US (occurrence: US)
  Receive Date: 20200302
  Receipt Date: 20200302
  Transmission Date: 20200409
  Serious: No
  Sender: FDA-Public Use
  Company Number: US-FRESENIUS KABI-FK202002023

PATIENT
  Age: 8 Month
  Sex: Female

DRUGS (5)
  1. OMEGAVEN [Suspect]
     Active Substance: FISH OIL
     Indication: PRODUCT USED FOR UNKNOWN INDICATION
     Dosage: 1G/KG
     Route: 042
     Dates: start: 201905
  2. OMEGAVEN [Suspect]
     Active Substance: FISH OIL
     Dosage: OFF AND ON
     Route: 042
     Dates: start: 201906, end: 201908
  3. SMOFLIPID [Suspect]
     Active Substance: FISH OIL\MEDIUM-CHAIN TRIGLYCERIDES\OLIVE OIL\SOYBEAN OIL
     Indication: PRODUCT USED FOR UNKNOWN INDICATION
     Dosage: INTERMITTENTLY
     Route: 042
     Dates: start: 201906, end: 201908
  4. OMEGAVEN [Suspect]
     Active Substance: FISH OIL
     Dosage: 1.5G/KG/D
     Route: 042
     Dates: end: 20200111
  5. SMOFLIPID [Suspect]
     Active Substance: FISH OIL\MEDIUM-CHAIN TRIGLYCERIDES\OLIVE OIL\SOYBEAN OIL
     Dosage: 2G/KG/D
     Route: 042
     Dates: end: 20200111

REACTIONS (3)
  - Skin exfoliation [Recovering/Resolving]
  - Fatty acid deficiency [Unknown]
  - Product use issue [Unknown]

NARRATIVE: CASE EVENT DATE: 201906
